FAERS Safety Report 8814759 (Version 1)
Quarter: 2012Q4

REPORT INFORMATION
  Report Type: 
  Country: BR (occurrence: BR)
  Receive Date: 20120928
  Receipt Date: 20120928
  Transmission Date: 20130627
  Serious: Yes (Death, Other)
  Sender: FDA-Public Use
  Company Number: BR-PFIZER INC-2012160242

PATIENT
  Age: 75 Year
  Sex: Female
  Weight: 60 kg

DRUGS (6)
  1. SUTENT [Suspect]
     Indication: RENAL CANCER
     Dosage: 50 mg, 1x/day (first cycle)
     Route: 048
     Dates: start: 20120523
  2. AMIODARONE [Concomitant]
     Dosage: from Monday to Friday
  3. SERTRALINE HYDROCHLORIDE [Concomitant]
  4. TYLEX [Concomitant]
  5. METFORMIN [Concomitant]
  6. ENALAPRIL [Concomitant]

REACTIONS (7)
  - Death [Fatal]
  - Haematochezia [Unknown]
  - Asthenia [Not Recovered/Not Resolved]
  - Confusional state [Unknown]
  - Platelet count decreased [Unknown]
  - Blood urea increased [Unknown]
  - Leukocytosis [Unknown]
